FAERS Safety Report 5184169-X (Version None)
Quarter: 2006Q4

REPORT INFORMATION
  Report Type: 
  Country: None (occurrence: None)
  Receive Date: 20061220
  Receipt Date: 20060215
  Transmission Date: 20070319
  Serious: No
  Sender: FDA-Public Use
  Company Number: US-GLAXOSMITHKLINE-A0593777A

PATIENT
  Age: 32 Year
  Sex: Female

DRUGS (2)
  1. NICODERM CQ [Suspect]
     Dates: start: 20060215, end: 20060215
  2. WELLBUTRIN [Concomitant]

REACTIONS (5)
  - DYSPHEMIA [None]
  - FEELING JITTERY [None]
  - HOT FLUSH [None]
  - MALAISE [None]
  - NERVOUSNESS [None]
